FAERS Safety Report 4978929-5 (Version None)
Quarter: 2006Q2

REPORT INFORMATION
  Report Type: 
  Country: None (occurrence: None)
  Receive Date: 20060417
  Receipt Date: 20060403
  Transmission Date: 20061013
  Serious: Yes (Hospitalization)
  Sender: FDA-Public Use
  Company Number: 2006038513

PATIENT
  Age: 36 Year
  Sex: Female
  Weight: 39.8 kg

DRUGS (5)
  1. SUTENT [Suspect]
     Indication: METASTATIC RENAL CELL CARCINOMA
     Dosage: 50 MG (50 MG, 1 IN 1 D), ORAL
     Route: 048
     Dates: start: 20060105
  2. MORPHINE [Concomitant]
  3. OMEPRAZOLE [Concomitant]
  4. MYLANTA (ALUMINUM HYDROXIDE, MAGNESIUM HYDROXIDE, SIMETHICONE) [Concomitant]
  5. PYRIDOXINE HCL [Concomitant]

REACTIONS (5)
  - BODY TEMPERATURE INCREASED [None]
  - DRUG DOSE OMISSION [None]
  - GASTRITIS [None]
  - HAEMOGLOBIN DECREASED [None]
  - REFUSAL OF TREATMENT BY PATIENT [None]
